FAERS Safety Report 23655412 (Version 1)
Quarter: 2024Q1

REPORT INFORMATION
  Report Type: Spontaneous
  Country: CN (occurrence: CN)
  Receive Date: 20240320
  Receipt Date: 20240320
  Transmission Date: 20240410
  Serious: Yes (Other)
  Sender: FDA-Public Use
  Company Number: CN-BEIGENE-BGN-2024-003827

PATIENT

DRUGS (3)
  1. TISLELIZUMAB [Suspect]
     Active Substance: TISLELIZUMAB
     Indication: Hepatic cancer
     Dosage: 200 MILLIGRAM, Q3WK
     Route: 041
     Dates: start: 20230509
  2. REGORAFENIB [Concomitant]
     Active Substance: REGORAFENIB
     Indication: Hepatic cancer
     Dosage: 120 MILLIGRAM, QD
     Dates: start: 202212
  3. REGORAFENIB [Concomitant]
     Active Substance: REGORAFENIB
     Dosage: 80 MILLIGRAM, QWK D1-5
     Dates: start: 20230509

REACTIONS (8)
  - Myelosuppression [Recovered/Resolved]
  - Urinary retention [Unknown]
  - Ascites [Unknown]
  - Pyrexia [Unknown]
  - Decreased appetite [Unknown]
  - Cough [Unknown]
  - Abdominal pain [Unknown]
  - Pollakiuria [Unknown]

NARRATIVE: CASE EVENT DATE: 20230603
